FAERS Safety Report 10219646 (Version 1)
Quarter: 2014Q2

REPORT INFORMATION
  Report Type: Spontaneous
  Country: US (occurrence: US)
  Receive Date: 20140605
  Receipt Date: 20140605
  Transmission Date: 20141212
  Serious: No
  Sender: FDA-Public Use
  Company Number: US-GILEAD-2014-0104433

PATIENT
  Age: 56 Year
  Sex: Female

DRUGS (4)
  1. SOVALDI [Suspect]
     Indication: HEPATITIS C
     Dosage: 400 MG, QD
     Route: 065
     Dates: start: 20140317
  2. RIBAVIRIN [Concomitant]
  3. ANTACIDS [Concomitant]
  4. ANALGESICS [Concomitant]

REACTIONS (1)
  - Abdominal pain upper [Unknown]
